FAERS Safety Report 6446851-3 (Version None)
Quarter: 2009Q4

REPORT INFORMATION
  Report Type: 
  Country: None (occurrence: None)
  Receive Date: 20091119
  Receipt Date: 20091110
  Transmission Date: 20100525
  Serious: Yes (Hospitalization, Other)
  Sender: FDA-Public Use
  Company Number: CA-JNJFOC-20090302229

PATIENT
  Sex: Male
  Weight: 72 kg

DRUGS (14)
  1. REMICADE [Suspect]
     Route: 042
  2. REMICADE [Suspect]
     Route: 042
  3. REMICADE [Suspect]
     Route: 042
  4. REMICADE [Suspect]
     Route: 042
  5. REMICADE [Suspect]
     Indication: CROHN'S DISEASE
     Route: 042
  6. PREDNISONE [Concomitant]
     Indication: PREMEDICATION
     Route: 048
  7. BENADRYL [Concomitant]
     Indication: PREMEDICATION
     Route: 048
  8. OXYCET [Concomitant]
  9. COZAAR [Concomitant]
     Route: 048
  10. METHOTREXATE [Concomitant]
  11. MONICOR [Concomitant]
     Route: 048
  12. LIPITOR [Concomitant]
     Route: 048
  13. PREVACID [Concomitant]
     Route: 048
  14. ASPIRIN [Concomitant]

REACTIONS (4)
  - INCISION SITE INFECTION [None]
  - NASOPHARYNGITIS [None]
  - OROPHARYNGEAL PAIN [None]
  - SHOULDER OPERATION [None]
